FAERS Safety Report 7086766-3 (Version None)
Quarter: 2010Q4

REPORT INFORMATION
  Report Type: 
  Country: None (occurrence: None)
  Receive Date: 20101105
  Receipt Date: 20101025
  Transmission Date: 20110411
  Serious: Yes (Hospitalization)
  Sender: FDA-Public Use
  Company Number: CA-GENZYME-FLUD-1000323

PATIENT
  Sex: Male

DRUGS (9)
  1. FLUDARA [Suspect]
     Indication: ACUTE MYELOID LEUKAEMIA
     Dosage: UNK MG, UNK
     Route: 065
  2. PLERIXAFOR [Suspect]
     Indication: ACUTE MYELOID LEUKAEMIA
     Dosage: 23 MG, UNK
     Route: 058
     Dates: start: 20100927
  3. BUSULFAN [Suspect]
     Indication: ACUTE MYELOID LEUKAEMIA
     Dosage: UNK
     Route: 065
  4. LISINOPRIL [Concomitant]
     Dosage: 10 MG, QOD
     Route: 048
  5. CYCLOSPORINE [Concomitant]
     Dosage: 150 MG, BID
     Route: 048
  6. MYCOPHENOLATE MOFETIL [Concomitant]
     Dosage: 1500 MG, TID
     Route: 048
  7. NORVASC [Concomitant]
     Dosage: 10 MG, QOD
     Route: 048
  8. ATIVAN [Concomitant]
     Dosage: 1 MG, PRN
     Route: 048
  9. SEPTRA [Concomitant]
     Dosage: 2 UNK, TIW
     Route: 048

REACTIONS (1)
  - HYPOTENSION [None]
